FAERS Safety Report 15795046 (Version 1)
Quarter: 2019Q1

REPORT INFORMATION
  Report Type: Spontaneous
  Country: US (occurrence: US)
  Receive Date: 20190107
  Receipt Date: 20190107
  Transmission Date: 20190417
  Serious: Yes (Hospitalization)
  Sender: FDA-Public Use
  Company Number: None

PATIENT
  Sex: Female

DRUGS (9)
  1. PROMACTA [Suspect]
     Active Substance: ELTROMBOPAG OLAMINE
     Indication: SKIN DISORDER
     Route: 048
     Dates: start: 20181031
  2. DOK CAP 100MG [Concomitant]
  3. METHOCARBAM 750MG [Concomitant]
  4. VITAMIN D 50000UNT [Concomitant]
  5. ALENDRONATE 35MG [Concomitant]
  6. HYDROXYCHLOR 200MG [Concomitant]
  7. POLYETH GLYC POW 3350 [Concomitant]
  8. TEMAZEPAM 15MG [Concomitant]
  9. LEVOTHYROXIN 112MCG [Concomitant]

REACTIONS (1)
  - Surgery [None]

NARRATIVE: CASE EVENT DATE: 20190104
